FAERS Safety Report 10154241 (Version 2)
Quarter: 2014Q2

REPORT INFORMATION
  Report Type: Spontaneous
  Country: US (occurrence: US)
  Receive Date: 20140506
  Receipt Date: 20140515
  Transmission Date: 20141212
  Serious: No
  Sender: FDA-Public Use
  Company Number: US-PFIZER INC-2014119037

PATIENT
  Age: 51 Year
  Sex: Male

DRUGS (8)
  1. LYRICA [Suspect]
     Dosage: UNK
  2. SERTRALINE HCL [Suspect]
     Dosage: UNK
  3. ALPRAZOLAM [Suspect]
     Dosage: UNK
  4. ATORVASTATIN CALCIUM [Suspect]
     Dosage: UNK
  5. GLIPIZIDE [Suspect]
     Dosage: UNK
  6. LISINOPRIL [Suspect]
     Dosage: UNK
  7. METFORMIN HCL [Suspect]
     Dosage: UNK
  8. RISPERIDONE [Suspect]
     Dosage: UNK

REACTIONS (1)
  - Drug hypersensitivity [Unknown]
